FAERS Safety Report 12115150 (Version 1)
Quarter: 2016Q1

REPORT INFORMATION
  Report Type: Spontaneous
  Country: US (occurrence: US)
  Receive Date: 20160225
  Receipt Date: 20160225
  Transmission Date: 20160526
  Serious: Yes (Other)
  Sender: FDA-Public Use
  Company Number: US-LANTHEUS-LMI-2015-00706

PATIENT
  Age: 82 Year
  Sex: Female
  Weight: 90 kg

DRUGS (1)
  1. DEFINITY [Suspect]
     Active Substance: PERFLUTREN
     Indication: ECHOCARDIOGRAM
     Dosage: CONCENTRATED DEFINITY
     Route: 040
     Dates: start: 20151205, end: 20151205

REACTIONS (6)
  - Back pain [Recovered/Resolved]
  - Loss of consciousness [Recovered/Resolved]
  - Anal incontinence [Recovered/Resolved]
  - Hypoxia [Recovered/Resolved]
  - Cyanosis [Recovered/Resolved]
  - Urinary incontinence [Recovered/Resolved]

NARRATIVE: CASE EVENT DATE: 20151205
